FAERS Safety Report 7419616-3 (Version None)
Quarter: 2011Q2

REPORT INFORMATION
  Report Type: 
  Country: None (occurrence: None)
  Receive Date: 20110418
  Receipt Date: 20110404
  Transmission Date: 20111010
  Serious: Yes (Other)
  Sender: FDA-Public Use
  Company Number: DE-JNJFOC-20110406374

PATIENT
  Sex: Male
  Weight: 133 kg

DRUGS (6)
  1. PALEXIA RETARD [Suspect]
     Indication: PRODUCT USED FOR UNKNOWN INDICATION
     Dosage: 3 IN 1 DAY
     Route: 048
  2. METOPROLOL TARTRATE [Concomitant]
  3. PALEXIA RETARD [Suspect]
     Dosage: 3 PER DAY
     Route: 048
  4. PANTOPRAZOLE [Concomitant]
  5. EXFORGE [Concomitant]
  6. ALLOPURINOL [Concomitant]

REACTIONS (1)
  - WITHDRAWAL SYNDROME [None]
